FAERS Safety Report 16246022 (Version 1)
Quarter: 2019Q2

REPORT INFORMATION
  Report Type: Spontaneous
  Country: US (occurrence: US)
  Receive Date: 20190426
  Receipt Date: 20190426
  Transmission Date: 20190711
  Serious: No
  Sender: FDA-Public Use
  Company Number: US-NEXGEN PHARMA, INC.-2066300

PATIENT
  Age: 33 Year
  Sex: Male

DRUGS (3)
  1. PAXIL [Concomitant]
     Active Substance: PAROXETINE HYDROCHLORIDE
  2. CHENODAL [Suspect]
     Active Substance: CHENODIOL
     Indication: LIPIDOSIS
     Route: 048
     Dates: start: 20180527
  3. MIRTAZAPINE. [Concomitant]
     Active Substance: MIRTAZAPINE

REACTIONS (2)
  - Muscle twitching [Recovering/Resolving]
  - Pollakiuria [Recovered/Resolved]
